FAERS Safety Report 9065722 (Version 1)
Quarter: 2013Q1

REPORT INFORMATION
  Report Type: Report from Study
  Country: US (occurrence: US)
  Receive Date: 20130131
  Receipt Date: 20130131
  Transmission Date: 20140127
  Serious: No
  Sender: FDA-Public Use
  Company Number: US-ABBOTT-12P-163-0978562-00

PATIENT
  Sex: Female
  Weight: 77.18 kg

DRUGS (6)
  1. HUMIRA [Suspect]
     Route: 058
     Dates: start: 201012, end: 201102
  2. HUMIRA [Suspect]
     Dates: start: 201102, end: 201111
  3. HUMIRA [Suspect]
     Dates: start: 201111, end: 201206
  4. HUMIRA [Suspect]
     Route: 058
     Dates: start: 201206
  5. PENTASA [Suspect]
     Indication: CROHN^S DISEASE
  6. ENTOCORT [Suspect]
     Indication: CROHN^S DISEASE

REACTIONS (2)
  - Crohn^s disease [Unknown]
  - Crohn^s disease [Unknown]
